FAERS Safety Report 17524868 (Version 2)
Quarter: 2020Q1

REPORT INFORMATION
  Report Type: Report from Study
  Country: CO (occurrence: CO)
  Receive Date: 20200311
  Receipt Date: 20200330
  Transmission Date: 20200409
  Serious: Yes (Hospitalization)
  Sender: FDA-Public Use
  Company Number: NVSC2020CO066619

PATIENT
  Sex: Female
  Weight: 53 kg

DRUGS (1)
  1. RYDAPT [Suspect]
     Active Substance: MIDOSTAURIN
     Indication: ACUTE MYELOID LEUKAEMIA
     Dosage: 50 MG, QD
     Route: 048

REACTIONS (9)
  - Leukaemia recurrent [Unknown]
  - Malaise [Recovered/Resolved]
  - Inappropriate schedule of product administration [Unknown]
  - Abdominal neoplasm [Unknown]
  - Haemoglobin decreased [Recovered/Resolved]
  - Abdominal pain upper [Unknown]
  - General physical health deterioration [Recovered/Resolved]
  - Platelet count decreased [Recovered/Resolved]
  - Diarrhoea [Unknown]
